FAERS Safety Report 18245754 (Version 4)
Quarter: 2020Q4

REPORT INFORMATION
  Report Type: Spontaneous
  Country: US (occurrence: US)
  Receive Date: 20200909
  Receipt Date: 20201216
  Transmission Date: 20210113
  Serious: Yes (Other)
  Sender: FDA-Public Use
  Company Number: US-GLAXOSMITHKLINE-US2020AMR178573

PATIENT
  Sex: Female

DRUGS (3)
  1. ZEJULA [Suspect]
     Active Substance: NIRAPARIB
     Indication: OVARIAN CANCER
     Dosage: 200 MG, QD
     Route: 048
     Dates: start: 20200827
  2. ZEJULA [Suspect]
     Active Substance: NIRAPARIB
     Dosage: 100 MG, QD
     Route: 065
     Dates: start: 20201003
  3. ZEJULA [Suspect]
     Active Substance: NIRAPARIB
     Dosage: 100 MG (EVERY OTHER DAY)
     Route: 065
     Dates: end: 20201209

REACTIONS (13)
  - Burning sensation [Unknown]
  - Intestinal resection [Unknown]
  - Fatigue [Unknown]
  - Dizziness [Unknown]
  - Rectal haemorrhage [Unknown]
  - Interstitial lung disease [Unknown]
  - Condition aggravated [Unknown]
  - Diarrhoea [Unknown]
  - Feeling abnormal [Unknown]
  - Dyspnoea [Unknown]
  - Sleep disorder [Unknown]
  - Malaise [Unknown]
  - Inappropriate schedule of product administration [Unknown]
